FAERS Safety Report 17850659 (Version 4)
Quarter: 2020Q3

REPORT INFORMATION
  Report Type: Report from Study
  Country: US (occurrence: US)
  Receive Date: 20200602
  Receipt Date: 20200825
  Transmission Date: 20201103
  Serious: Yes (Other)
  Sender: FDA-Public Use
  Company Number: NVSC2020US151918

PATIENT
  Sex: Male

DRUGS (1)
  1. COSENTYX [Suspect]
     Active Substance: SECUKINUMAB
     Indication: PSORIATIC ARTHROPATHY
     Dosage: UNK (BENEATH THE SKIN,USUALLY VIA INJECTION)
     Route: 058

REACTIONS (4)
  - Uveitis [Unknown]
  - Pain [Recovering/Resolving]
  - Wrong schedule [Unknown]
  - Arthralgia [Recovering/Resolving]
